FAERS Safety Report 6594810-2 (Version None)
Quarter: 2010Q1

REPORT INFORMATION
  Report Type: 
  Country: None (occurrence: None)
  Receive Date: 20100222
  Receipt Date: 20100211
  Transmission Date: 20100710
  Serious: Yes (Other)
  Sender: FDA-Public Use
  Company Number: US-PFIZER INC-2010018724

PATIENT
  Sex: Male
  Weight: 80.726 kg

DRUGS (5)
  1. CHANTIX [Suspect]
     Indication: SMOKING CESSATION THERAPY
     Dosage: 0.5 MG, 1X/DAY
     Route: 048
     Dates: start: 20100204, end: 20100211
  2. ALPRAZOLAM [Concomitant]
     Indication: MOOD SWINGS
     Dosage: 1 MG, 4X/DAY
     Route: 048
  3. HYDROCODONE [Concomitant]
     Indication: PAIN IN EXTREMITY
     Dosage: 10/650
     Route: 048
  4. HYDROCODONE [Concomitant]
     Indication: BACK PAIN
  5. HYDROCODONE [Concomitant]
     Indication: ARTHRALGIA

REACTIONS (9)
  - ABDOMINAL PAIN UPPER [None]
  - ANGER [None]
  - CONSTIPATION [None]
  - DYSPEPSIA [None]
  - DYSURIA [None]
  - HAEMATEMESIS [None]
  - INSOMNIA [None]
  - NAUSEA [None]
  - OROPHARYNGEAL PAIN [None]
